FAERS Safety Report 6262106-4 (Version None)
Quarter: 2009Q3

REPORT INFORMATION
  Report Type: 
  Country: None (occurrence: None)
  Receive Date: 20090707
  Receipt Date: 20090707
  Transmission Date: 20100115
  Serious: Yes (Other)
  Sender: FDA-Public Use
  Company Number: None

PATIENT
  Age: 27 Year
  Sex: Male
  Weight: 74.8435 kg

DRUGS (2)
  1. CIPROFLOXACIN HYDROCHLORIDE [Suspect]
     Indication: LOCALISED INFECTION
     Dosage: 500 MG  TWICE/DAY PO
     Route: 048
     Dates: start: 20090612, end: 20090617
  2. CIPROFLOXACIN HYDROCHLORIDE [Suspect]
     Indication: STAPHYLOCOCCAL INFECTION
     Dosage: 500 MG  TWICE/DAY PO
     Route: 048
     Dates: start: 20090612, end: 20090617

REACTIONS (1)
  - MUSCLE TWITCHING [None]
